FAERS Safety Report 25388829 (Version 2)
Quarter: 2025Q2

REPORT INFORMATION
  Report Type: Spontaneous
  Country: JP (occurrence: JP)
  Receive Date: 20250603
  Receipt Date: 20250610
  Transmission Date: 20250716
  Serious: Yes (Other)
  Sender: ALEXION PHARMACEUTICALS
  Company Number: JP-ASTRAZENECA-250052150_063010_P_1

PATIENT

DRUGS (2)
  1. DAPAGLIFLOZIN [Suspect]
     Active Substance: DAPAGLIFLOZIN
     Indication: Type 2 diabetes mellitus
     Dosage: 5 MILLIGRAM, QD
  2. DAPAGLIFLOZIN [Suspect]
     Active Substance: DAPAGLIFLOZIN
     Dosage: 10 MILLIGRAM, QD

REACTIONS (3)
  - Renal impairment [Unknown]
  - Glomerular filtration rate decreased [Unknown]
  - Glycosylated haemoglobin decreased [Unknown]
